FAERS Safety Report 8201376-X (Version None)
Quarter: 2012Q1

REPORT INFORMATION
  Report Type: 
  Country: None (occurrence: None)
  Receive Date: 20120312
  Receipt Date: 20120307
  Transmission Date: 20120608
  Serious: Yes (Death)
  Sender: FDA-Public Use
  Company Number: US-CELGENEUS-163-20785-11121332

PATIENT
  Sex: Male

DRUGS (6)
  1. PAMIDRONATE DISODIUM [Concomitant]
     Route: 041
  2. DEXAMETHASONE [Concomitant]
     Dosage: 20 MILLIGRAM
     Route: 065
     Dates: start: 20110912
  3. ZOCOR [Concomitant]
     Dosage: 20 MILLIGRAM
     Route: 048
     Dates: start: 20090101
  4. ZANTAC [Concomitant]
     Dosage: 300 MILLIGRAM
     Route: 065
     Dates: start: 20111030
  5. ACCURETIC [Concomitant]
     Indication: HYPERTENSION
     Dosage: 20/25 MG
     Route: 048
     Dates: start: 20110329
  6. THALOMID [Suspect]
     Indication: MULTIPLE MYELOMA
     Dosage: 50 MILLIGRAM
     Route: 048
     Dates: start: 20111017, end: 20111202

REACTIONS (1)
  - CARDIO-RESPIRATORY ARREST [None]
